FAERS Safety Report 8841385 (Version 4)
Quarter: 2013Q2

REPORT INFORMATION
  Report Type: Report from Study
  Country: FR (occurrence: FR)
  Receive Date: 20121015
  Receipt Date: 20130626
  Transmission Date: 20140414
  Serious: Yes (Hospitalization, Disabling, Other)
  Sender: FDA-Public Use
  Company Number: FR-UCBSA-068567

PATIENT
  Age: 76 Year
  Sex: Male
  Weight: 79 kg

DRUGS (9)
  1. CIMZIA [Suspect]
     Indication: RHEUMATOID ARTHRITIS
     Route: 058
     Dates: start: 20120322, end: 2012
  2. CIMZIA [Suspect]
     Indication: RHEUMATOID ARTHRITIS
     Route: 058
     Dates: start: 2012, end: 20120828
  3. METOJECT [Suspect]
     Indication: RHEUMATOID ARTHRITIS
     Dosage: 10 OR 15 MG WEEKLY
     Route: 058
     Dates: start: 2009, end: 20120828
  4. CORTANCYL [Suspect]
     Indication: RHEUMATOID ARTHRITIS
     Dosage: DAILY DOSE: 10 MG
     Route: 048
     Dates: start: 200508
  5. BI-PROFENID [Concomitant]
     Indication: RHEUMATOID ARTHRITIS
     Route: 048
  6. INEXIUM [Concomitant]
     Dosage: DAILY DOE: 20 MG
     Route: 048
  7. CO-TAREG [Concomitant]
     Indication: HYPERTENSION
  8. DOLIPRANE [Concomitant]
     Indication: PAIN
  9. PREDNISONE [Concomitant]
     Indication: RHEUMATOID ARTHRITIS
     Dosage: DOSE: 7 MG WEEKLY
     Dates: start: 20121015

REACTIONS (3)
  - Herpes zoster [Recovered/Resolved]
  - Peritonitis [Recovered/Resolved]
  - Diverticulitis [Recovered/Resolved]
